FAERS Safety Report 17871145 (Version 1)
Quarter: 2020Q2

REPORT INFORMATION
  Report Type: Spontaneous
  Country: CN (occurrence: CN)
  Receive Date: 20200608
  Receipt Date: 20200608
  Transmission Date: 20200714
  Serious: Yes (Hospitalization, Other)
  Sender: FDA-Public Use
  Company Number: CN-009507513-2006CHN001393

PATIENT
  Age: 87 Year
  Sex: Female
  Weight: 42 kg

DRUGS (2)
  1. TIENAM  (BULK) [Suspect]
     Active Substance: CILASTATIN SODIUM\IMIPENEM
     Indication: URINARY TRACT INFECTION
     Dosage: 0.5 G
     Route: 042
     Dates: start: 20200525, end: 20200526
  2. SODIUM CHLORIDE. [Concomitant]
     Active Substance: SODIUM CHLORIDE
     Indication: URINARY TRACT INFECTION
     Dosage: 100 MILLILITER, THREE TIMES A DAY
     Route: 042
     Dates: start: 20200525

REACTIONS (2)
  - Seizure [Recovering/Resolving]
  - Depressed level of consciousness [Recovering/Resolving]

NARRATIVE: CASE EVENT DATE: 20200526
